FAERS Safety Report 12976765 (Version 2)
Quarter: 2016Q4

REPORT INFORMATION
  Report Type: Spontaneous
  Country: US (occurrence: US)
  Receive Date: 20161128
  Receipt Date: 20161130
  Transmission Date: 20170207
  Serious: Yes (Other)
  Sender: FDA-Public Use
  Company Number: PHEH2016US030321

PATIENT
  Sex: Male

DRUGS (1)
  1. GILENYA [Suspect]
     Active Substance: FINGOLIMOD HYDROCHLORIDE
     Indication: MULTIPLE SCLEROSIS
     Route: 048

REACTIONS (16)
  - Optic neuritis [Unknown]
  - Vision blurred [Unknown]
  - Cognitive disorder [Unknown]
  - Asthenia [Unknown]
  - Visual impairment [Unknown]
  - Memory impairment [Unknown]
  - Gait disturbance [Unknown]
  - Mood altered [Unknown]
  - Heat exhaustion [Unknown]
  - Peroneal nerve palsy [Unknown]
  - Neuropathy peripheral [Unknown]
  - Musculoskeletal stiffness [Unknown]
  - Temperature intolerance [Unknown]
  - Fatigue [Unknown]
  - Limb discomfort [Unknown]
  - Balance disorder [Unknown]
